FAERS Safety Report 13046113 (Version 1)
Quarter: 2016Q4

REPORT INFORMATION
  Report Type: Spontaneous
  Country: US (occurrence: US)
  Receive Date: 20161220
  Receipt Date: 20161220
  Transmission Date: 20170207
  Serious: No
  Sender: FDA-Public Use
  Company Number: US-INTERPRAG-PM-OCA2016-00001

PATIENT

DRUGS (7)
  1. COLAZAL [Concomitant]
     Active Substance: BALSALAZIDE DISODIUM
     Dosage: 750 MG, QD
  2. RIFAMPIN. [Concomitant]
     Active Substance: RIFAMPIN
     Dosage: 150 MG, UNK
  3. OCALIVA [Suspect]
     Active Substance: OBETICHOLIC ACID
     Indication: CHOLANGITIS SCLEROSING
     Dosage: 5 MG, QD
     Route: 048
     Dates: start: 20160627, end: 201608
  4. TRAZODONE [Concomitant]
     Active Substance: TRAZODONE HYDROCHLORIDE
     Dosage: 50 MG, UNK
  5. CYPROHEPTADINE. [Concomitant]
     Active Substance: CYPROHEPTADINE
     Dosage: UNK, Q6H
  6. ONDANSETRON HCL [Concomitant]
     Active Substance: ONDANSETRON HYDROCHLORIDE
     Dosage: 4 MG, UNK
  7. URSODIOL. [Concomitant]
     Active Substance: URSODIOL
     Dosage: 500 MG, UNK

REACTIONS (5)
  - Product use issue [Unknown]
  - Wound [Unknown]
  - Skin disorder [Unknown]
  - Complication associated with device [Unknown]
  - Pruritus generalised [Recovering/Resolving]

NARRATIVE: CASE EVENT DATE: 20160630
